FAERS Safety Report 11092914 (Version 1)
Quarter: 2015Q2

REPORT INFORMATION
  Report Type: Spontaneous
  Country: US (occurrence: None)
  Receive Date: 20150505
  Receipt Date: 20150505
  Transmission Date: 20150821
  Serious: Yes (Hospitalization)
  Sender: FDA-Public Use
  Company Number: None

PATIENT
  Age: 63 Year
  Sex: Male
  Weight: 103.5 kg

DRUGS (1)
  1. LEDIPASVIR/SOFOSBUVIR [Suspect]
     Active Substance: LEDIPASVIR\SOFOSBUVIR
     Indication: HEPATITIS C
     Dosage: MG, EVERY DAY, PO
     Route: 048
     Dates: start: 20150213

REACTIONS (5)
  - Dysarthria [None]
  - Amnesia [None]
  - Transient ischaemic attack [None]
  - Headache [None]
  - Cerebrovascular accident [None]

NARRATIVE: CASE EVENT DATE: 20150429
